FAERS Safety Report 22173586 (Version 2)
Quarter: 2023Q2

REPORT INFORMATION
  Report Type: Report from Study
  Country: US (occurrence: US)
  Receive Date: 20230404
  Receipt Date: 20230531
  Transmission Date: 20230721
  Serious: No
  Sender: FDA-Public Use
  Company Number: US-ABBVIE-22K-163-4471913-00

PATIENT
  Sex: Female

DRUGS (4)
  1. HUMIRA [Suspect]
     Active Substance: ADALIMUMAB
     Indication: Psoriasis
     Dosage: CITRATE FREE
     Route: 058
  2. HUMIRA [Suspect]
     Active Substance: ADALIMUMAB
     Indication: Psoriatic arthropathy
     Dosage: CITRATE FREE
     Route: 058
     Dates: start: 20190220
  3. HUMIRA [Suspect]
     Active Substance: ADALIMUMAB
     Route: 058
  4. JANSSEN COVID-19 VACCINE [Concomitant]
     Active Substance: AD26.COV2.S
     Indication: COVID-19 immunisation
     Dosage: TIME INTERVAL: 1 TOTAL: FIRST DOSE
     Route: 030
     Dates: start: 20211215, end: 20211215

REACTIONS (7)
  - Joint stiffness [Recovering/Resolving]
  - Fungal infection [Unknown]
  - Psoriasis [Not Recovered/Not Resolved]
  - Papule [Not Recovered/Not Resolved]
  - Bacterial infection [Unknown]
  - Therapeutic product effect decreased [Recovered/Resolved]
  - Arthralgia [Unknown]
